FAERS Safety Report 6402701-2 (Version None)
Quarter: 2009Q4

REPORT INFORMATION
  Report Type: 
  Country: None (occurrence: None)
  Receive Date: 20091009
  Receipt Date: 20090929
  Transmission Date: 20100525
  Serious: Yes (Other)
  Sender: FDA-Public Use
  Company Number: 8052948

PATIENT
  Age: 53 Year
  Sex: Male

DRUGS (2)
  1. KEPPRA [Suspect]
     Dosage: 1500 MG /D, PO
     Route: 048
     Dates: start: 20090611
  2. QUARK [Concomitant]

REACTIONS (3)
  - DROP ATTACKS [None]
  - DRUG INEFFECTIVE [None]
  - THROMBOCYTOPENIA [None]
